FAERS Safety Report 18732296 (Version 1)
Quarter: 2021Q1

REPORT INFORMATION
  Report Type: Spontaneous
  Country: AR (occurrence: AR)
  Receive Date: 20210113
  Receipt Date: 20210113
  Transmission Date: 20210419
  Serious: Yes (Other)
  Sender: FDA-Public Use
  Company Number: AR-AMGEN-ARGSP2020189511

PATIENT
  Age: 58 Year
  Sex: Female

DRUGS (3)
  1. ENBREL [Suspect]
     Active Substance: ETANERCEPT
     Dosage: 50 MG, WEEKLY
     Route: 065
  2. ENBREL [Suspect]
     Active Substance: ETANERCEPT
     Indication: RHEUMATOID ARTHRITIS
     Dosage: 50 MG, WEEKLY
     Route: 065
     Dates: start: 20101010
  3. ENBREL [Suspect]
     Active Substance: ETANERCEPT
     Dosage: 50 MG EVERY 15
     Route: 065

REACTIONS (5)
  - Intentional product misuse [Recovered/Resolved]
  - Rheumatoid arthritis [Not Recovered/Not Resolved]
  - Malaise [Recovered/Resolved]
  - Feeling abnormal [Unknown]
  - Inflammation [Unknown]

NARRATIVE: CASE EVENT DATE: 201907
